FAERS Safety Report 7208597-3 (Version None)
Quarter: 2010Q4

REPORT INFORMATION
  Report Type: 
  Country: None (occurrence: None)
  Receive Date: 20101222
  Receipt Date: 20101210
  Transmission Date: 20110411
  Serious: Yes (Hospitalization, Other)
  Sender: FDA-Public Use
  Company Number: 2009AC000446

PATIENT
  Age: 59 Year
  Sex: Male

DRUGS (39)
  1. DIGOXIN [Suspect]
     Dosage: ;PO
     Route: 048
     Dates: start: 19990101
  2. DIGOXIN [Suspect]
     Indication: HEART RATE ABNORMAL
     Dosage: 0.125 MG; QD; PO
     Route: 048
     Dates: start: 20020401
  3. COUMADIN [Concomitant]
  4. COMBIVENT [Concomitant]
  5. ADVAIR [Concomitant]
  6. KEFLEX [Concomitant]
  7. ADDERALL 10 [Concomitant]
  8. SPIRONOLACTONE [Concomitant]
  9. KLONOPIN [Concomitant]
  10. AMITRIPTYLINE [Concomitant]
  11. NEXIUM [Concomitant]
  12. METOCLOPRAMIDE [Concomitant]
  13. CARTIA EC [Concomitant]
  14. . [Concomitant]
  15. CLONOPIN [Concomitant]
  16. RISPERDAL [Concomitant]
  17. CARDIZEM [Concomitant]
  18. TOPROL-XL [Concomitant]
  19. . [Concomitant]
  20. . [Concomitant]
  21. . [Concomitant]
  22. . [Concomitant]
  23. OXYCODONE [Concomitant]
  24. DIAZEPAM [Concomitant]
  25. FUROSEMIDE [Concomitant]
  26. POTASSIUM [Concomitant]
  27. CEPHALEXIN [Concomitant]
  28. SILVER SULFADIAZINE [Concomitant]
  29. AMMONIUM LACTATE [Concomitant]
  30. VOLTAREN [Concomitant]
  31. TUSSIONEX [Concomitant]
  32. SPIRONOLACTONE [Concomitant]
  33. ATENOLOL [Concomitant]
  34. METANX [Concomitant]
  35. INTERFERON [Concomitant]
  36. REQUIP [Concomitant]
  37. RISPERDAL [Concomitant]
  38. . [Concomitant]
  39. PROTOPIC [Concomitant]

REACTIONS (112)
  - ABDOMINAL PAIN [None]
  - ACUTE PRERENAL FAILURE [None]
  - ALBUMIN GLOBULIN RATIO DECREASED [None]
  - ALPHA 1 FOETOPROTEIN INCREASED [None]
  - ANTICOAGULATION DRUG LEVEL ABOVE THERAPEUTIC [None]
  - ANXIETY [None]
  - AORTIC VALVE INCOMPETENCE [None]
  - AORTIC VALVE SCLEROSIS [None]
  - ARTHRALGIA [None]
  - ASCITES [None]
  - ATRIAL FIBRILLATION [None]
  - ATRIAL SEPTAL DEFECT [None]
  - AXONAL NEUROPATHY [None]
  - BACK PAIN [None]
  - BALANCE DISORDER [None]
  - BLADDER CANCER [None]
  - BLADDER NEOPLASM [None]
  - BLOOD CALCIUM DECREASED [None]
  - BLOOD GLUCOSE INCREASED [None]
  - BLOOD UREA DECREASED [None]
  - BLOOD UREA NITROGEN/CREATININE RATIO DECREASED [None]
  - BURNING SENSATION [None]
  - CACHEXIA [None]
  - CARDIAC FAILURE CONGESTIVE [None]
  - CAROTID ARTERY STENOSIS [None]
  - CELLULITIS [None]
  - CEREBROVASCULAR ACCIDENT [None]
  - CERVICOBRACHIAL SYNDROME [None]
  - CHEST DISCOMFORT [None]
  - CHEST PAIN [None]
  - CHOLELITHIASIS [None]
  - CHRONIC HEPATIC FAILURE [None]
  - COAGULOPATHY [None]
  - COLONIC POLYP [None]
  - COR PULMONALE [None]
  - CORONARY ARTERY DISEASE [None]
  - CYANOSIS [None]
  - CYSTITIS [None]
  - DEMYELINATION [None]
  - DEPRESSION [None]
  - DIVERTICULUM INTESTINAL [None]
  - DIZZINESS [None]
  - DRUG ABUSE [None]
  - DRUG INEFFECTIVE [None]
  - ECONOMIC PROBLEM [None]
  - ELECTROCARDIOGRAM ST SEGMENT DEPRESSION [None]
  - ELECTROCARDIOGRAM ST-T SEGMENT ABNORMAL [None]
  - ELECTROCARDIOGRAM T WAVE ABNORMAL [None]
  - EYELID PTOSIS [None]
  - FALSE POSITIVE INVESTIGATION RESULT [None]
  - FLUID RETENTION [None]
  - GASTROINTESTINAL DISORDER [None]
  - GLOBULINS INCREASED [None]
  - HAEMATOCRIT DECREASED [None]
  - HAEMATURIA [None]
  - HEART RATE INCREASED [None]
  - HEART RATE IRREGULAR [None]
  - HEPATIC CIRRHOSIS [None]
  - HEPATIC NEOPLASM MALIGNANT [None]
  - HEPATORENAL SYNDROME [None]
  - HOMOCYSTINAEMIA [None]
  - HYPERHIDROSIS [None]
  - HYPOAESTHESIA [None]
  - HYPOALBUMINAEMIA [None]
  - INCREASED TENDENCY TO BRUISE [None]
  - INTERVERTEBRAL DISC PROTRUSION [None]
  - LEFT ATRIAL DILATATION [None]
  - LEFT VENTRICULAR HYPERTROPHY [None]
  - LUNG HYPERINFLATION [None]
  - MALNUTRITION [None]
  - MITRAL VALVE INCOMPETENCE [None]
  - MULTIPLE INJURIES [None]
  - MUSCLE ATROPHY [None]
  - MUSCLE SPASMS [None]
  - MYOCARDIAL ISCHAEMIA [None]
  - NECK PAIN [None]
  - OEDEMA PERIPHERAL [None]
  - OVERWEIGHT [None]
  - PAIN IN EXTREMITY [None]
  - PALPITATIONS [None]
  - PARAESTHESIA [None]
  - PERIORBITAL OEDEMA [None]
  - PERIPHERAL SENSORIMOTOR NEUROPATHY [None]
  - PERONEAL NERVE PALSY [None]
  - PLATELET COUNT DECREASED [None]
  - POOR DENTAL CONDITION [None]
  - PORTAL HYPERTENSIVE GASTROPATHY [None]
  - POST PROCEDURAL COMPLICATION [None]
  - PRODUCT FORMULATION ISSUE [None]
  - PRODUCTIVE COUGH [None]
  - PULMONARY HYPERTENSION [None]
  - RADIAL NERVE PALSY [None]
  - RASH PRURITIC [None]
  - RED BLOOD CELL COUNT DECREASED [None]
  - RESTLESS LEGS SYNDROME [None]
  - RIGHT ATRIAL DILATATION [None]
  - ROAD TRAFFIC ACCIDENT [None]
  - SKIN LACERATION [None]
  - SNORING [None]
  - SOMNOLENCE [None]
  - SPINAL FUSION SURGERY [None]
  - SPINAL OSTEOARTHRITIS [None]
  - TOBACCO USER [None]
  - TONSILLAR HYPERTROPHY [None]
  - TREATMENT FAILURE [None]
  - TREATMENT NONCOMPLIANCE [None]
  - TRICUSPID VALVE INCOMPETENCE [None]
  - VIITH NERVE PARALYSIS [None]
  - VISION BLURRED [None]
  - WEIGHT DECREASED [None]
  - WHEEZING [None]
  - WHITE BLOOD CELL COUNT DECREASED [None]
